FAERS Safety Report 4482953-9 (Version None)
Quarter: 2004Q4

REPORT INFORMATION
  Report Type: 
  Country: None (occurrence: None)
  Receive Date: 20041022
  Receipt Date: 20041013
  Transmission Date: 20050328
  Serious: Yes (Hospitalization, Other)
  Sender: FDA-Public Use
  Company Number: US-MERCK-0410USA02105

PATIENT
  Age: 66 Year
  Sex: Female

DRUGS (15)
  1. VIOXX [Suspect]
     Indication: OSTEOPOROSIS
     Route: 048
     Dates: end: 20030101
  2. VIOXX [Suspect]
     Indication: ARTHRALGIA
     Route: 048
     Dates: end: 20030101
  3. ALTACE [Concomitant]
     Route: 065
  4. TOPROL-XL [Concomitant]
     Route: 065
  5. LIPITOR [Concomitant]
     Route: 065
  6. ACCOLATE [Concomitant]
     Route: 065
  7. BENADRYL [Concomitant]
     Route: 065
  8. FIORICET TABLETS [Concomitant]
     Route: 065
  9. [THERAPY UNSPECIFIED] [Concomitant]
     Route: 065
  10. LEXAPRO [Concomitant]
     Route: 065
  11. EVISTA [Concomitant]
     Route: 065
  12. CELEBREX [Concomitant]
     Route: 065
  13. NORVASC [Concomitant]
     Route: 065
  14. [THERAPY UNSPECIFIED] [Concomitant]
     Route: 065
  15. HYDROCHLOROTHIAZIDE [Concomitant]
     Route: 065

REACTIONS (1)
  - MYOCARDIAL INFARCTION [None]
